FAERS Safety Report 24748558 (Version 1)
Quarter: 2024Q4

REPORT INFORMATION
  Report Type: Spontaneous
  Country: US (occurrence: US)
  Receive Date: 20241218
  Receipt Date: 20241218
  Transmission Date: 20250115
  Serious: Yes (Other)
  Sender: AMGEN
  Company Number: US-AMGEN-USASP2024244151

PATIENT

DRUGS (5)
  1. CARFILZOMIB [Suspect]
     Active Substance: CARFILZOMIB
     Indication: Plasma cell myeloma refractory
     Dosage: UNK
     Route: 065
  2. IXAZOMIB [Suspect]
     Active Substance: IXAZOMIB
     Indication: Plasma cell myeloma refractory
     Dosage: 3 MILLIGRAM (ON DAY 1, 8,15 EVERY 28 DAYS)
     Route: 065
  3. IXAZOMIB [Suspect]
     Active Substance: IXAZOMIB
     Dosage: 4 MILLIGRAM (ON DAY 1, 8,15 EVERY 28 DAYS)
     Route: 065
  4. PANOBINOSTAT [Suspect]
     Active Substance: PANOBINOSTAT
     Indication: Plasma cell myeloma refractory
     Dosage: 20 MILLIGRAM (ON DAY 1, 3, 5, 15, 17, 19)
     Route: 065
  5. DEXAMETHASONE [Suspect]
     Active Substance: DEXAMETHASONE
     Indication: Plasma cell myeloma refractory
     Dosage: 20 MILLIGRAM (ON DAY 1, 2, 8, 9, 15, 16)
     Route: 065

REACTIONS (12)
  - Electrocardiogram QT prolonged [Unknown]
  - Thrombocytopenia [Unknown]
  - Neutropenia [Unknown]
  - Plasma cell myeloma refractory [Unknown]
  - Therapy non-responder [Unknown]
  - Nausea [Unknown]
  - Fatigue [Unknown]
  - Decreased appetite [Unknown]
  - Anaemia [Unknown]
  - Arthralgia [Unknown]
  - Diarrhoea [Unknown]
  - Therapy partial responder [Unknown]
